FAERS Safety Report 22150743 (Version 1)
Quarter: 2023Q1

REPORT INFORMATION
  Report Type: Report from Study
  Country: US (occurrence: US)
  Receive Date: 20230329
  Receipt Date: 20230329
  Transmission Date: 20230417
  Serious: Yes (Other)
  Sender: FDA-Public Use
  Company Number: US-UCBSA-2023013314

PATIENT
  Age: 16 Month
  Sex: Male

DRUGS (12)
  1. LEVETIRACETAM [Suspect]
     Active Substance: LEVETIRACETAM
     Indication: Status epilepticus
     Dosage: 30 MILLIGRAM/KILOGRAM, ONCE DAILY (QD)
  2. LEVETIRACETAM [Suspect]
     Active Substance: LEVETIRACETAM
     Dosage: 163 MILLIGRAM/KILOGRAM, ONCE DAILY (QD)
  3. TOPIRAMATE [Suspect]
     Active Substance: TOPIRAMATE
     Indication: Status epilepticus
     Dosage: 12 MILLIGRAM/KILOGRAM, ONCE DAILY (QD)
  4. PYRIDOXINE [Suspect]
     Active Substance: PYRIDOXINE
     Indication: Status epilepticus
     Dosage: 100 MILLIGRAM 3 DOSES
     Route: 042
  5. PYRIDOXINE [Suspect]
     Active Substance: PYRIDOXINE
     Dosage: 30 MILLIGRAM/KILOGRAM, ONCE DAILY (QD)
     Route: 042
  6. CLONAZEPAM [Suspect]
     Active Substance: CLONAZEPAM
     Indication: Status epilepticus
     Dosage: 2.6 MILLIGRAM/KILOGRAM, ONCE DAILY (QD)
  7. CLOBAZAM [Suspect]
     Active Substance: CLOBAZAM
     Indication: Status epilepticus
     Dosage: 2.6 MILLIGRAM/KILOGRAM, ONCE DAILY (QD)
  8. FENFLURAMINE HYDROCHLORIDE [Concomitant]
     Active Substance: FENFLURAMINE HYDROCHLORIDE
     Indication: Status epilepticus
     Dosage: 0.2 MILLIGRAM/KILOGRAM, ONCE DAILY (QD)
  9. FENFLURAMINE HYDROCHLORIDE [Concomitant]
     Active Substance: FENFLURAMINE HYDROCHLORIDE
     Dosage: 0.7 MILLIGRAM/KILOGRAM, ONCE DAILY (QD)
  10. PHENOBARBITAL [Concomitant]
     Active Substance: PHENOBARBITAL
     Indication: Status epilepticus
     Dosage: 5.2 MILLIGRAM/KILOGRAM, ONCE DAILY (QD)
  11. CANNABIDIOL [Concomitant]
     Active Substance: CANNABIDIOL
     Indication: Status epilepticus
     Dosage: 21 MILLIGRAM/KILOGRAM, ONCE DAILY (QD)
  12. VALPROIC ACID [Concomitant]
     Active Substance: VALPROIC ACID
     Indication: Status epilepticus
     Dosage: 54 MILLIGRAM/KILOGRAM, ONCE DAILY (QD)

REACTIONS (2)
  - Psychomotor disadaptation syndrome [Unknown]
  - Multiple-drug resistance [Unknown]
